FAERS Safety Report 11792994 (Version 1)
Quarter: 2015Q4

REPORT INFORMATION
  Report Type: Spontaneous
  Country: US (occurrence: None)
  Receive Date: 20151201
  Receipt Date: 20151201
  Transmission Date: 20160305
  Serious: No
  Sender: FDA-Public Use
  Company Number: None

PATIENT
  Age: 77 Year
  Sex: Female
  Weight: 183 kg

DRUGS (8)
  1. LUNESTA [Concomitant]
     Active Substance: ESZOPICLONE
  2. VITAMIN D [Concomitant]
     Active Substance: CHOLECALCIFEROL
  3. POTASSIUM [Concomitant]
     Active Substance: POTASSIUM
  4. CENTRUM SILVER W/MINERALS [Concomitant]
  5. AMLODIPINE [Concomitant]
     Active Substance: AMLODIPINE BESYLATE
  6. BYSTOLIC [Concomitant]
     Active Substance: NEBIVOLOL HYDROCHLORIDE
  7. LEVOFLOXACIN 250 MG. TABLET (GENERIC FOR LEVAQUIN) [Suspect]
     Active Substance: LEVOFLOXACIN
     Indication: CYSTITIS
     Route: 048
     Dates: start: 20151109, end: 20151110
  8. PREMARIN CREAM [Concomitant]

REACTIONS (6)
  - Asthenia [None]
  - Malaise [None]
  - Diarrhoea [None]
  - Rash generalised [None]
  - Pruritus [None]
  - Vomiting [None]

NARRATIVE: CASE EVENT DATE: 201511
